FAERS Safety Report 23931912 (Version 1)
Quarter: 2024Q2

REPORT INFORMATION
  Report Type: Report from Study
  Country: US (occurrence: US)
  Receive Date: 20240603
  Receipt Date: 20240603
  Transmission Date: 20240715
  Serious: Yes (Other)
  Sender: FDA-Public Use
  Company Number: US-JNJFOC-20240240777

PATIENT
  Sex: Female

DRUGS (27)
  1. STELARA [Suspect]
     Active Substance: USTEKINUMAB
     Indication: Crohn^s disease
     Route: 058
  2. STELARA [Suspect]
     Active Substance: USTEKINUMAB
     Route: 058
  3. AMLODIPINE BESYLATE [Concomitant]
     Active Substance: AMLODIPINE BESYLATE
  4. AMLODIPINE BESYLATE [Concomitant]
     Active Substance: AMLODIPINE BESYLATE
  5. GLIMEPIRIDE [Concomitant]
     Active Substance: GLIMEPIRIDE
  6. LOSARTAN POTASSIUM [Concomitant]
     Active Substance: LOSARTAN POTASSIUM
  7. METFORMIN HYDROCHLORIDE [Concomitant]
     Active Substance: METFORMIN HYDROCHLORIDE
  8. MYRBETRIQ [Concomitant]
     Active Substance: MIRABEGRON
  9. MYRBETRIQ [Concomitant]
     Active Substance: MIRABEGRON
  10. MYRBETRIQ [Concomitant]
     Active Substance: MIRABEGRON
  11. MYRBETRIQ [Concomitant]
     Active Substance: MIRABEGRON
  12. OXYBUTYNIN CHLORIDE [Concomitant]
     Active Substance: OXYBUTYNIN CHLORIDE
  13. OXYBUTYNIN CHLORIDE [Concomitant]
     Active Substance: OXYBUTYNIN CHLORIDE
  14. OXYBUTYNIN CHLORIDE [Concomitant]
     Active Substance: OXYBUTYNIN CHLORIDE
  15. OXYBUTYNIN CHLORIDE [Concomitant]
     Active Substance: OXYBUTYNIN CHLORIDE
  16. PIOGLITAZONE [Concomitant]
     Active Substance: PIOGLITAZONE
  17. PIOGLITAZONE [Concomitant]
     Active Substance: PIOGLITAZONE
  18. PIOGLITAZONE [Concomitant]
     Active Substance: PIOGLITAZONE
  19. PIOGLITAZONE [Concomitant]
     Active Substance: PIOGLITAZONE
  20. SPIRONOLACTONE [Concomitant]
     Active Substance: SPIRONOLACTONE
  21. SPIRONOLACTONE [Concomitant]
     Active Substance: SPIRONOLACTONE
  22. SPIRONOLACTONE [Concomitant]
     Active Substance: SPIRONOLACTONE
  23. SPIRONOLACTONE [Concomitant]
     Active Substance: SPIRONOLACTONE
  24. SUCRALFATE [Concomitant]
     Active Substance: SUCRALFATE
  25. SUCRALFATE [Concomitant]
     Active Substance: SUCRALFATE
  26. SUCRALFATE [Concomitant]
     Active Substance: SUCRALFATE
  27. SUCRALFATE [Concomitant]
     Active Substance: SUCRALFATE

REACTIONS (9)
  - Anaemia [Not Recovered/Not Resolved]
  - Crohn^s disease [Not Recovered/Not Resolved]
  - Dyspepsia [Not Recovered/Not Resolved]
  - Arthritis [Not Recovered/Not Resolved]
  - Dehydration [Not Recovered/Not Resolved]
  - Weight increased [Not Recovered/Not Resolved]
  - Haemorrhage [Not Recovered/Not Resolved]
  - Constipation [Recovering/Resolving]
  - Blood glucose increased [Unknown]
